FAERS Safety Report 9211033 (Version 1)
Quarter: 2013Q2

REPORT INFORMATION
  Report Type: Report from Study
  Country: DE (occurrence: DE)
  Receive Date: 20130404
  Receipt Date: 20130404
  Transmission Date: 20140414
  Serious: Yes (Other)
  Sender: FDA-Public Use
  Company Number: DE-CUBIST PHARMACEUTICALS, INC.-2013CBST000219

PATIENT
  Sex: 0

DRUGS (13)
  1. CUBICIN [Suspect]
     Indication: SKIN INFECTION
     Dosage: 4.4 MG/KG BODY WEIGHT, [350 MG, OD]
     Route: 065
     Dates: start: 20130108, end: 20130117
  2. CUBICIN [Suspect]
     Indication: DIABETIC FOOT INFECTION
  3. CUBICIN [Suspect]
     Indication: STAPHYLOCOCCAL INFECTION
  4. JANUVIA [Concomitant]
     Indication: PRODUCT USED FOR UNKNOWN INDICATION
     Dosage: 100 MG, 0.5 DF QD
     Route: 065
  5. TOREM                              /01036501/ [Concomitant]
     Indication: PRODUCT USED FOR UNKNOWN INDICATION
     Dosage: 10 MG, 1 DF QD
     Route: 065
  6. ATACAND PLUS [Concomitant]
     Indication: PRODUCT USED FOR UNKNOWN INDICATION
     Dosage: 16/12.5 MG, 1 DF QD
     Route: 065
  7. BELOC ZOK [Concomitant]
     Indication: PRODUCT USED FOR UNKNOWN INDICATION
     Dosage: 47.5 MG, 1 DF BID
     Route: 065
  8. BELOC ZOK [Concomitant]
     Dosage: UNK
  9. FENISTIL-RETARD [Concomitant]
     Indication: PRODUCT USED FOR UNKNOWN INDICATION
     Dosage: 4 MG, 1 DF QD
     Route: 065
  10. FERRO SANOL DUODENAL [Concomitant]
     Indication: PRODUCT USED FOR UNKNOWN INDICATION
     Dosage: 100 MG, 1 DF QD
     Route: 065
  11. ALLOPURINOL [Concomitant]
     Indication: PRODUCT USED FOR UNKNOWN INDICATION
     Dosage: 100 MG, 1 DF QD
     Route: 065
  12. PHENPROCOUMON [Concomitant]
     Indication: PRODUCT USED FOR UNKNOWN INDICATION
     Dosage: UNK UNK, UNK
     Route: 065
  13. METHIMAZOLE [Concomitant]
     Indication: PRODUCT USED FOR UNKNOWN INDICATION
     Dosage: 500 MG/ML
     Route: 065

REACTIONS (2)
  - Drug ineffective [Unknown]
  - Blood creatinine increased [Not Recovered/Not Resolved]
